FAERS Safety Report 6531371-8 (Version None)
Quarter: 2010Q1

REPORT INFORMATION
  Report Type: 
  Country: None (occurrence: None)
  Receive Date: 20100108
  Receipt Date: 20091012
  Transmission Date: 20100710
  Serious: No
  Sender: FDA-Public Use
  Company Number: A0811411A

PATIENT
  Age: 42 Year
  Sex: Female

DRUGS (5)
  1. TYKERB [Suspect]
     Indication: BREAST CANCER
     Dosage: 1250MG PER DAY
     Route: 048
     Dates: start: 20090821
  2. XELODA [Concomitant]
  3. METOPROLOL TARTRATE [Concomitant]
  4. MAGNESIUM [Concomitant]
  5. CALCIUM [Concomitant]

REACTIONS (5)
  - ABDOMINAL PAIN UPPER [None]
  - ARTHRALGIA [None]
  - HEADACHE [None]
  - MYALGIA [None]
  - SKIN DISCOLOURATION [None]
